FAERS Safety Report 6920816-7 (Version None)
Quarter: 2010Q3

REPORT INFORMATION
  Report Type: 
  Country: None (occurrence: None)
  Receive Date: 20100812
  Receipt Date: 20100803
  Transmission Date: 20110219
  Serious: Yes (Hospitalization)
  Sender: FDA-Public Use
  Company Number: JP-ASTRAZENECA-2010SE37085

PATIENT
  Age: 74 Year
  Sex: Male

DRUGS (2)
  1. BLOPRESS PLUS [Suspect]
     Dosage: MORNING
     Route: 048
  2. BLOPRESS [Suspect]
     Dosage: EVENING
     Route: 048

REACTIONS (2)
  - PNEUMONIA [None]
  - VENTRICULAR TACHYCARDIA [None]
